FAERS Safety Report 8620934-1 (Version None)
Quarter: 2012Q3

REPORT INFORMATION
  Report Type: 
  Country: None (occurrence: None)
  Receive Date: 20120824
  Receipt Date: 20120821
  Transmission Date: 20120928
  Serious: Yes (Other)
  Sender: FDA-Public Use
  Company Number: US-PFIZER INC-2012205460

PATIENT

DRUGS (2)
  1. LEVOXYL [Suspect]
     Dosage: 150 UG, UNK
  2. LEVOXYL [Suspect]
     Dosage: 150 UG, UNK

REACTIONS (1)
  - NERVOUS SYSTEM DISORDER [None]
